FAERS Safety Report 6928336-0 (Version None)
Quarter: 2010Q3

REPORT INFORMATION
  Report Type: 
  Country: None (occurrence: None)
  Receive Date: 20100812
  Receipt Date: 20100805
  Transmission Date: 20110219
  Serious: Yes (Other)
  Sender: FDA-Public Use
  Company Number: 2010SP043254

PATIENT
  Age: 39 Year
  Sex: Male

DRUGS (1)
  1. REMERON [Suspect]
     Indication: PRODUCT USED FOR UNKNOWN INDICATION
     Dosage: 15 MG;QD;PO
     Route: 048
     Dates: start: 20100730, end: 20100804

REACTIONS (2)
  - HEPATIC FUNCTION ABNORMAL [None]
  - RHABDOMYOLYSIS [None]
